FAERS Safety Report 8823638 (Version 1)
Quarter: 2012Q4

REPORT INFORMATION
  Report Type: 
  Country: US (occurrence: US)
  Receive Date: 20121003
  Receipt Date: 20121003
  Transmission Date: 20130627
  Serious: No
  Sender: FDA-Public Use
  Company Number: US-VERTEX PHARMACEUTICAL INC.-2012-021137

PATIENT
  Sex: Male
  Weight: 70 kg

DRUGS (7)
  1. VX-950 [Suspect]
     Indication: HEPATITIS C
     Dosage: UNK
     Route: 048
     Dates: start: 20120608
  2. PEGASYS [Suspect]
     Indication: HEPATITIS C
     Dosage: 180 ?g, UNK
     Route: 058
     Dates: start: 20120607
  3. RIBAVIRIN [Suspect]
     Indication: HEPATITIS C
     Dosage: 1000 mg, qd
     Route: 048
     Dates: start: 20120607
  4. XANAX [Concomitant]
  5. MORPHINE SULFATE [Concomitant]
  6. OXYCODONE [Concomitant]
  7. IBUPROFEN [Concomitant]

REACTIONS (15)
  - Chest pain [Unknown]
  - Dyspnoea [Unknown]
  - Depression [Unknown]
  - Muscle spasms [Unknown]
  - Urine odour abnormal [Unknown]
  - Glossodynia [Unknown]
  - Insomnia [Unknown]
  - Anxiety [Unknown]
  - Apathy [Unknown]
  - Anger [Unknown]
  - Myalgia [Unknown]
  - Oral pain [Unknown]
  - Decreased appetite [Unknown]
  - Vomiting [Unknown]
  - Nausea [Unknown]
